FAERS Safety Report 13880078 (Version 1)
Quarter: 2017Q3

REPORT INFORMATION
  Report Type: Spontaneous
  Country: US (occurrence: None)
  Receive Date: 20170815
  Receipt Date: 20170815
  Transmission Date: 20171127
  Serious: No
  Sender: FDA-Public Use
  Company Number: None

PATIENT
  Age: 15 Year
  Sex: Female

DRUGS (1)
  1. NORDITROPIN [Suspect]
     Active Substance: SOMATROPIN

REACTIONS (3)
  - Manufacturing product shipping issue [None]
  - Drug dose omission [None]
  - Manufacturing product storage issue [None]

NARRATIVE: CASE EVENT DATE: 20170811
